FAERS Safety Report 6303187-9 (Version None)
Quarter: 2009Q3

REPORT INFORMATION
  Report Type: 
  Country: None (occurrence: None)
  Receive Date: 20090810
  Receipt Date: 20090120
  Transmission Date: 20100115
  Serious: No
  Sender: FDA-Public Use
  Company Number: A0577833A

PATIENT
  Age: 60 Year
  Sex: Female

DRUGS (4)
  1. PAXIL [Suspect]
     Dosage: 40MG PER DAY
     Route: 048
  2. PAXIL CR [Suspect]
     Indication: DEPRESSION
     Dosage: 25MG PER DAY
     Route: 048
     Dates: start: 20060101, end: 20060201
  3. LEVOXYL [Suspect]
     Route: 048
  4. LEVOXYL [Concomitant]

REACTIONS (8)
  - ANXIETY [None]
  - BLOOD CHOLESTEROL INCREASED [None]
  - DEPRESSION [None]
  - DRUG INEFFECTIVE [None]
  - FATIGUE [None]
  - FEELING DRUNK [None]
  - MALAISE [None]
  - NERVOUSNESS [None]
